FAERS Safety Report 14636550 (Version 3)
Quarter: 2018Q2

REPORT INFORMATION
  Report Type: Report from Study
  Country: CA (occurrence: CA)
  Receive Date: 20180314
  Receipt Date: 20180425
  Transmission Date: 20180711
  Serious: Yes (Hospitalization, Other)
  Sender: FDA-Public Use
  Company Number: CA-BRISTOL-MYERS SQUIBB COMPANY-BMS-2018-002609

PATIENT
  Age: 55 Year
  Sex: Female

DRUGS (2)
  1. YERVOY [Suspect]
     Active Substance: IPILIMUMAB
     Indication: MALIGNANT MELANOMA
     Dosage: 180 MG, Q3WK
     Route: 042
     Dates: start: 20180103
  2. NIVOLUMAB [Suspect]
     Active Substance: NIVOLUMAB
     Indication: MALIGNANT MELANOMA
     Dosage: 60 MG, Q3WK
     Route: 042
     Dates: start: 20180103

REACTIONS (14)
  - Memory impairment [Unknown]
  - Increased appetite [Unknown]
  - Cough [Unknown]
  - Dizziness [Recovering/Resolving]
  - Vaginal haemorrhage [Unknown]
  - Dysuria [Unknown]
  - Photosensitivity reaction [Recovering/Resolving]
  - Pollakiuria [Unknown]
  - Rash pruritic [Unknown]
  - Decreased appetite [Unknown]
  - Headache [Recovering/Resolving]
  - Heart rate increased [Unknown]
  - Weight decreased [Unknown]
  - Fatigue [Unknown]

NARRATIVE: CASE EVENT DATE: 201802
